FAERS Safety Report 14181205 (Version 1)
Quarter: 2017Q4

REPORT INFORMATION
  Report Type: Spontaneous
  Country: US (occurrence: US)
  Receive Date: 20171112
  Receipt Date: 20171112
  Transmission Date: 20180321
  Serious: No
  Sender: FDA-Public Use
  Company Number: US-BAUSCH-BL-2017-007142

PATIENT
  Age: 15 Year
  Sex: Male
  Weight: 70.37 kg

DRUGS (3)
  1. ONEXTON [Suspect]
     Active Substance: BENZOYL PEROXIDE\CLINDAMYCIN PHOSPHATE
     Indication: ACNE
     Dosage: 1 APPLICATION TO THE FACE EVERY MORNING
     Route: 061
     Dates: start: 20160929
  2. KETOCONAZOLE 2% CREAM [Concomitant]
     Indication: SEBORRHOEA
     Dosage: 1 APPLICATION AROUND NOSE AT BEDTIME
     Route: 061
     Dates: start: 20160929
  3. TRETINOIN. [Concomitant]
     Active Substance: TRETINOIN
     Indication: ACNE
     Dosage: 1 PEA SIZE TO THE CHEST FACE AND BACK AT BEDTIME
     Route: 061
     Dates: start: 20160929

REACTIONS (2)
  - Off label use [Unknown]
  - No adverse event [Unknown]
